FAERS Safety Report 7216378-X (Version None)
Quarter: 2011Q1

REPORT INFORMATION
  Report Type: 
  Country: None (occurrence: None)
  Receive Date: 20110107
  Receipt Date: 20101221
  Transmission Date: 20110831
  Serious: No
  Sender: FDA-Public Use
  Company Number: US-B.I. PHARMACEUTICALS,INC./RIDGEFIELD-2010-BP-15274BP

PATIENT
  Sex: Female

DRUGS (2)
  1. PRADAXA [Suspect]
     Indication: ATRIAL FIBRILLATION
     Dosage: 150 MG
     Route: 048
     Dates: start: 20101201
  2. EVISTA [Concomitant]
     Indication: BONE DENSITY DECREASED

REACTIONS (5)
  - DYSPEPSIA [None]
  - BURN OESOPHAGEAL [None]
  - EYE PRURITUS [None]
  - THROAT IRRITATION [None]
  - LACRIMATION INCREASED [None]
